FAERS Safety Report 22160727 (Version 2)
Quarter: 2023Q2

REPORT INFORMATION
  Report Type: Spontaneous
  Country: JP (occurrence: JP)
  Receive Date: 20230331
  Receipt Date: 20230424
  Transmission Date: 20230722
  Serious: Yes (Hospitalization, Other)
  Sender: FDA-Public Use
  Company Number: JP-VIATRISJAPAN-2023M1031797AA

PATIENT
  Age: 78 Year
  Sex: Female

DRUGS (6)
  1. LYRICA [Suspect]
     Active Substance: PREGABALIN
     Indication: Post herpetic neuralgia
     Dosage: UNK
     Route: 048
  2. LYRICA [Suspect]
     Active Substance: PREGABALIN
     Dosage: 300 MILLIGRAM
     Route: 048
  3. LYRICA [Suspect]
     Active Substance: PREGABALIN
     Dosage: DOSE DECREASED
     Route: 048
  4. HERBALS [Concomitant]
     Active Substance: HERBALS
     Indication: Post herpetic neuralgia
     Dosage: 5 GRAM, FOR 3 TIMES BETWEEN MEALS
     Route: 048
  5. KOSOSAN [Concomitant]
     Indication: Post herpetic neuralgia
     Dosage: 5 GRAM, FOR 3 TIMES BETWEEN MEALS
     Route: 048
  6. Shimotsuto [Concomitant]
     Indication: Post herpetic neuralgia
     Dosage: 5 GRAM, FOR 3 TIMES BETWEEN MEALS
     Route: 048

REACTIONS (4)
  - Lumbar vertebral fracture [Unknown]
  - Dizziness [Unknown]
  - Fall [Unknown]
  - Inadequate analgesia [Unknown]
